FAERS Safety Report 20004660 (Version 1)
Quarter: 2021Q4

REPORT INFORMATION
  Report Type: Spontaneous
  Country: US (occurrence: US)
  Receive Date: 20211027
  Receipt Date: 20211027
  Transmission Date: 20220303
  Serious: No
  Sender: FDA-Public Use
  Company Number: US-PERRIGO-21US002689

PATIENT
  Age: 71 Year
  Sex: Female
  Weight: 58.96 kg

DRUGS (32)
  1. CICLOPIROX [Suspect]
     Active Substance: CICLOPIROX
     Indication: Onychomycosis
     Dosage: 1 APPLICATION, QD, AT NIGHT
     Route: 061
     Dates: start: 201911
  2. BOTOX [Concomitant]
     Active Substance: ONABOTULINUMTOXINA
     Indication: Migraine
     Dosage: UNK, EVERY 3 MONTHS
     Route: 065
  3. LEVOTHYROXINE [Concomitant]
     Active Substance: LEVOTHYROXINE
     Indication: Hypothyroidism
     Dosage: UNK
     Route: 065
  4. ATENOLOL [Concomitant]
     Active Substance: ATENOLOL
     Indication: Hypertension
     Dosage: UNK
     Route: 065
     Dates: start: 202010
  5. UNSPECIFIED INGREDIENT [Concomitant]
     Active Substance: UNSPECIFIED INGREDIENT
     Indication: Hypertension
     Dosage: UNK
     Route: 065
     Dates: start: 201911, end: 202010
  6. BUDESONIDE [Concomitant]
     Active Substance: BUDESONIDE
     Indication: Colitis
     Dosage: UNK
     Route: 065
     Dates: start: 202002
  7. MELATONIN [Concomitant]
     Active Substance: MELATONIN
     Indication: Insomnia
     Dosage: 0.5 MG, QHS
     Route: 065
     Dates: start: 202011
  8. TRAMADOL [Concomitant]
     Active Substance: TRAMADOL
     Indication: Back pain
     Dosage: UNK
     Route: 065
     Dates: start: 2011
  9. FAMOTIDINE [Concomitant]
     Active Substance: FAMOTIDINE
     Indication: Gastrooesophageal reflux disease
     Dosage: UNK, PRN
     Route: 065
     Dates: start: 2020
  10. LOMOTIL [Concomitant]
     Active Substance: ATROPINE SULFATE\DIPHENOXYLATE HYDROCHLORIDE
     Indication: Diarrhoea
     Dosage: UNK, PRN
     Route: 065
     Dates: start: 2020
  11. HERBALS\TURMERIC [Concomitant]
     Active Substance: HERBALS\TURMERIC
     Indication: Supplementation therapy
     Dosage: UNK
     Route: 065
  12. ASPIRIN [Concomitant]
     Active Substance: ASPIRIN
     Indication: Prophylaxis
     Dosage: UNK
     Route: 065
     Dates: start: 2020
  13. ASPIRIN [Concomitant]
     Active Substance: ASPIRIN
     Indication: Hypertension
  14. ASPIRIN [Concomitant]
     Active Substance: ASPIRIN
     Indication: Inflammation
  15. CRANBERRY [Concomitant]
     Active Substance: CRANBERRY
     Indication: Supplementation therapy
     Dosage: UNK
     Route: 065
     Dates: start: 202012
  16. BERGAMOT CHOLESTEROL CARE [Concomitant]
     Indication: Supplementation therapy
     Dosage: UNK
     Route: 065
     Dates: start: 202012
  17. APRODINE [Concomitant]
     Active Substance: PSEUDOEPHEDRINE HYDROCHLORIDE\TRIPROLIDINE HYDROCHLORIDE
     Indication: Hypersensitivity
     Dosage: UNK
     Route: 065
  18. TIZANIDINE [Concomitant]
     Active Substance: TIZANIDINE
     Indication: Muscle spasms
     Dosage: UNK, PRN
     Route: 065
  19. CALCIUM PANTOTHENATE\CYANOCOBALAMIN\NIACINAMIDE\PYRIDOXINE HYDROCHLORI [Concomitant]
     Active Substance: CALCIUM PANTOTHENATE\CYANOCOBALAMIN\NIACINAMIDE\PYRIDOXINE HYDROCHLORIDE\RIBOFLAVIN\THIAMINE HYDROCH
     Indication: Supplementation therapy
     Dosage: UNK
     Route: 065
  20. IRON [Concomitant]
     Active Substance: IRON
     Indication: Supplementation therapy
     Dosage: UNK
     Route: 065
  21. GLUCOSAMINE [Concomitant]
     Active Substance: GLUCOSAMINE
     Indication: Supplementation therapy
     Dosage: UNK
     Route: 065
  22. COENZYME Q10 [Concomitant]
     Active Substance: DIETARY SUPPLEMENT\UBIDECARENONE
     Indication: Supplementation therapy
     Dosage: UNK
     Route: 065
  23. ZINC [Concomitant]
     Active Substance: ZINC
     Indication: Supplementation therapy
     Dosage: UNK
     Route: 065
  24. POTASSIUM [Concomitant]
     Active Substance: POTASSIUM
     Indication: Supplementation therapy
     Dosage: UNK
     Route: 065
  25. FISH OIL [Concomitant]
     Active Substance: FISH OIL
     Indication: Supplementation therapy
     Dosage: UNK
     Route: 065
  26. TOCOPHEROL [Concomitant]
     Active Substance: TOCOPHEROL
     Indication: Supplementation therapy
     Dosage: UNK
     Route: 065
  27. ERGOCALCIFEROL [Concomitant]
     Active Substance: ERGOCALCIFEROL
     Indication: Supplementation therapy
     Dosage: UNK
     Route: 065
  28. VITAMINS [Concomitant]
     Active Substance: VITAMINS
     Indication: Supplementation therapy
     Dosage: UNK
     Route: 065
  29. RELPAX [Concomitant]
     Active Substance: ELETRIPTAN HYDROBROMIDE
     Indication: Migraine
     Dosage: UNK
     Route: 065
  30. MAXALT [Concomitant]
     Active Substance: RIZATRIPTAN BENZOATE
     Indication: Migraine
     Dosage: UNK
     Route: 065
  31. SINGULAIR [Concomitant]
     Active Substance: MONTELUKAST SODIUM
     Indication: Hypersensitivity
     Dosage: UNK, PRN
     Route: 065
  32. ZOFRAN [Concomitant]
     Active Substance: ONDANSETRON HYDROCHLORIDE
     Indication: Nausea
     Dosage: UNK
     Route: 065

REACTIONS (4)
  - Drug ineffective [Unknown]
  - Incorrect product administration duration [Not Recovered/Not Resolved]
  - Wrong technique in product usage process [Not Recovered/Not Resolved]
  - Product dose omission issue [Recovered/Resolved]

NARRATIVE: CASE EVENT DATE: 20191101
